FAERS Safety Report 4747522-1 (Version None)
Quarter: 2005Q3

REPORT INFORMATION
  Report Type: 
  Country: None (occurrence: None)
  Receive Date: 20050817
  Receipt Date: 20050817
  Transmission Date: 20060218
  Serious: Yes (Hospitalization, Other)
  Sender: FDA-Public Use
  Company Number: None

PATIENT
  Sex: Female
  Weight: 104 kg

DRUGS (3)
  1. CISPLATIN [Suspect]
     Indication: SMALL CELL LUNG CANCER STAGE UNSPECIFIED
     Dosage: SEE IMAGE
     Dates: start: 20050107, end: 20050114
  2. CISPLATIN [Suspect]
     Indication: SMALL CELL LUNG CANCER STAGE UNSPECIFIED
     Dosage: SEE IMAGE
     Dates: start: 20050127
  3. IRINOTECAN [Suspect]
     Dosage: SEE IMAGE
     Dates: start: 20050107, end: 20050114

REACTIONS (3)
  - CATHETER SITE OEDEMA [None]
  - CATHETER SITE PAIN [None]
  - DEEP VEIN THROMBOSIS [None]
